FAERS Safety Report 7540189-9 (Version None)
Quarter: 2011Q2

REPORT INFORMATION
  Report Type: 
  Country: None (occurrence: None)
  Receive Date: 20110610
  Receipt Date: 20110530
  Transmission Date: 20111010
  Serious: Yes (Hospitalization)
  Sender: FDA-Public Use
  Company Number: US-ELI_LILLY_AND_COMPANY-US201010005434

PATIENT
  Sex: Female
  Weight: 53.6 kg

DRUGS (4)
  1. CETUXIMAB [Suspect]
     Indication: NON-SMALL CELL LUNG CANCER
     Dosage: 378 MG, OTHER
     Dates: start: 20100428, end: 20100922
  2. GEMCITABINE HYDROCHLORIDE [Suspect]
     Indication: NON-SMALL CELL LUNG CANCER
     Dosage: 1133 MG, OTHER
     Dates: start: 20100428, end: 20100922
  3. CETUXIMAB [Suspect]
     Dosage: UNK
     Dates: start: 20101013
  4. CARBOPLATIN [Suspect]
     Indication: NON-SMALL CELL LUNG CANCER
     Dosage: 416 MG, OTHER
     Dates: start: 20100428

REACTIONS (1)
  - PNEUMONIA [None]
